FAERS Safety Report 25373199 (Version 3)
Quarter: 2025Q3

REPORT INFORMATION
  Report Type: Spontaneous
  Country: US (occurrence: US)
  Receive Date: 20250529
  Receipt Date: 20250721
  Transmission Date: 20251021
  Serious: Yes (Hospitalization)
  Sender: BIOVITRUM
  Company Number: US-BIOVITRUM-2025-US-005341

PATIENT
  Age: 3 Year
  Sex: Male

DRUGS (1)
  1. KINERET [Suspect]
     Active Substance: ANAKINRA
     Indication: Product used for unknown indication
     Route: 058
     Dates: start: 202504

REACTIONS (2)
  - Product availability issue [Unknown]
  - Myopia [Unknown]
